FAERS Safety Report 7568922-0 (Version None)
Quarter: 2011Q2

REPORT INFORMATION
  Report Type: 
  Country: None (occurrence: None)
  Receive Date: 20110623
  Receipt Date: 20110617
  Transmission Date: 20111010
  Serious: Yes (Other)
  Sender: FDA-Public Use
  Company Number: US-PFIZER INC-2007005368

PATIENT
  Sex: Male
  Weight: 77.11 kg

DRUGS (12)
  1. ZOCOR [Concomitant]
     Route: 048
  2. ASPIRIN [Concomitant]
     Route: 048
  3. PROTONIX [Concomitant]
     Dosage: UNK
     Dates: start: 20020101
  4. CHANTIX [Suspect]
     Indication: EX-TOBACCO USER
     Dosage: 0.5 MG, 1X/DAY
     Route: 048
     Dates: start: 20070101, end: 20070201
  5. PLAVIX [Concomitant]
     Dosage: UNK
     Route: 048
  6. FERROUS SULFATE TAB [Concomitant]
     Route: 048
  7. TAMSULOSIN HCL [Concomitant]
     Dosage: UNK
     Dates: start: 20020101
  8. FOLIC ACID [Concomitant]
     Route: 048
  9. CYMBALTA [Concomitant]
     Dosage: UNK
     Dates: start: 20020101
  10. NEXIUM [Concomitant]
     Route: 048
  11. LOPRESSOR [Concomitant]
     Dosage: UNK
     Route: 048
     Dates: start: 20020101
  12. PRINIVIL [Concomitant]
     Dosage: UNK
     Route: 048
     Dates: start: 20020101

REACTIONS (7)
  - DEPRESSION [None]
  - THIRST [None]
  - DISTURBANCE IN ATTENTION [None]
  - NIGHTMARE [None]
  - INSOMNIA [None]
  - THINKING ABNORMAL [None]
  - SELF ESTEEM DECREASED [None]
